FAERS Safety Report 15011306 (Version 4)
Quarter: 2018Q4

REPORT INFORMATION
  Report Type: Spontaneous
  Country: BR (occurrence: BR)
  Receive Date: 20180614
  Receipt Date: 20181016
  Transmission Date: 20190204
  Serious: Yes (Other)
  Sender: FDA-Public Use
  Company Number: BR-PFIZER INC-2018238614

PATIENT
  Age: 67 Year
  Sex: Female

DRUGS (8)
  1. DIOSMINE [Concomitant]
     Active Substance: DIOSMIN
     Indication: VARICOSE VEIN
     Dosage: 450 MG, UNK
  2. XALATAN [Suspect]
     Active Substance: LATANOPROST
     Indication: GLAUCOMA
     Dosage: 2 GTT, 1X/DAY (ONE DROP EACH EYE, ONCE A DAY)
     Dates: start: 2008
  3. BUDESONIDE. [Concomitant]
     Active Substance: BUDESONIDE
     Dosage: UNK UNK, 1X/DAY
  4. XALATAN [Suspect]
     Active Substance: LATANOPROST
     Dosage: UNK
  5. ALENIA /01479302/ [Concomitant]
     Dosage: 6/200 MG
  6. XALATAN [Suspect]
     Active Substance: LATANOPROST
     Dosage: 2 GTT, 1X/DAY (ONE DROP EACH EYE, ONCE A DAY)
     Dates: start: 2008
  7. XALATAN [Suspect]
     Active Substance: LATANOPROST
     Dosage: UNK
  8. AZOPT [Concomitant]
     Active Substance: BRINZOLAMIDE
     Dosage: 2 DROPS IN EACH EYE (AT MORNING AND AT NIGHT)

REACTIONS (3)
  - Dry eye [Not Recovered/Not Resolved]
  - Vitreous detachment [Recovered/Resolved]
  - Asthmatic crisis [Recovered/Resolved]

NARRATIVE: CASE EVENT DATE: 2015
